FAERS Safety Report 8066522-X (Version None)
Quarter: 2012Q1

REPORT INFORMATION
  Report Type: 
  Country: None (occurrence: None)
  Receive Date: 20120124
  Receipt Date: 20120112
  Transmission Date: 20120608
  Serious: Yes (Other)
  Sender: FDA-Public Use
  Company Number: PHHY2011DE109826

PATIENT
  Age: 73 Year
  Sex: Female
  Weight: 78 kg

DRUGS (5)
  1. RASILEZ HCT [Suspect]
     Indication: HYPERTENSION
     Dosage: 1 DF, QD
     Route: 048
     Dates: start: 20111205, end: 20111210
  2. TRAMADOL HYDROCHLORIDE [Concomitant]
     Indication: ARTHRITIS
     Dosage: 1 DF, TID
     Route: 048
     Dates: start: 19920101
  3. OMEPRAZOLE [Concomitant]
     Indication: GASTROOESOPHAGEAL REFLUX DISEASE
     Dosage: 1 DF, QD
     Route: 048
     Dates: start: 20020101
  4. HYDROCORTISONE [Concomitant]
     Indication: ADRENAL DISORDER
     Dosage: 1 DF, QD
     Route: 048
     Dates: start: 20090101
  5. METOPROLOL TARTRATE AND HYDROCHLOROTHIAZIDE [Concomitant]
     Indication: HYPERTENSION
     Dosage: 1 DF, QD
     Route: 048
     Dates: start: 20090101

REACTIONS (8)
  - VERTIGO CNS ORIGIN [None]
  - GASTROINTESTINAL PAIN [None]
  - HEADACHE [None]
  - EYE IRRITATION [None]
  - LACRIMATION INCREASED [None]
  - BLOOD PRESSURE INCREASED [None]
  - IRRITABLE BOWEL SYNDROME [None]
  - DIARRHOEA [None]
